FAERS Safety Report 5556091-8 (Version None)
Quarter: 2007Q4

REPORT INFORMATION
  Report Type: 
  Country: None (occurrence: None)
  Receive Date: 20071213
  Receipt Date: 20071203
  Transmission Date: 20080405
  Serious: Yes (Disabling)
  Sender: FDA-Public Use
  Company Number: JP-BAXTER-2007BH001732

PATIENT
  Sex: Female
  Weight: 64 kg

DRUGS (2)
  1. PROPLEX T [Suspect]
     Indication: HAEMORRHAGE
     Route: 042
     Dates: start: 20030401
  2. PROPLEX T [Suspect]
     Indication: HAEMATURIA
     Route: 042
     Dates: start: 20030401

REACTIONS (1)
  - CEREBRAL INFARCTION [None]
